FAERS Safety Report 18229828 (Version 1)
Quarter: 2020Q3

REPORT INFORMATION
  Report Type: Spontaneous
  Country: IT (occurrence: IT)
  Receive Date: 20200903
  Receipt Date: 20200903
  Transmission Date: 20201103
  Serious: Yes (Other)
  Sender: FDA-Public Use
  Company Number: NVSC2020IT242509

PATIENT
  Age: 14 Year
  Sex: Female

DRUGS (4)
  1. IRINOTECAN [Suspect]
     Active Substance: IRINOTECAN
     Indication: EWING^S SARCOMA RECURRENT
     Dosage: 50 MG/M2, QD
     Route: 042
  2. VINCRISTINE [Suspect]
     Active Substance: VINCRISTINE
     Indication: EWING^S SARCOMA RECURRENT
     Dosage: 1.5 MG/M2
     Route: 042
  3. CEFIXIME. [Concomitant]
     Active Substance: CEFIXIME
     Indication: PROPHYLAXIS AGAINST DIARRHOEA
     Dosage: 8 MG/KG, QD (MAX 400 MG/DAY)
     Route: 048
  4. PAZOPANIB [Suspect]
     Active Substance: PAZOPANIB
     Indication: EWING^S SARCOMA RECURRENT
     Dosage: 450 MG/M2, QD (MAX 600 MG/DAY)
     Route: 048

REACTIONS (3)
  - Malignant neoplasm progression [Unknown]
  - Ewing^s sarcoma recurrent [Unknown]
  - Product use in unapproved indication [Unknown]
